FAERS Safety Report 25744778 (Version 1)
Quarter: 2025Q3

REPORT INFORMATION
  Report Type: Spontaneous
  Country: EU (occurrence: EU)
  Receive Date: 20250901
  Receipt Date: 20250901
  Transmission Date: 20251020
  Serious: Yes (Other)
  Sender: BIOVITRUM
  Company Number: EU-BIOVITRUM-2025-IT-011694

PATIENT
  Age: 12 Year
  Sex: Female

DRUGS (1)
  1. ANAKINRA [Suspect]
     Active Substance: ANAKINRA
     Indication: Status epilepticus

REACTIONS (3)
  - Intestinal obstruction [Unknown]
  - Inflammatory marker increased [Unknown]
  - Off label use [Recovered/Resolved]
